FAERS Safety Report 7384452-3 (Version None)
Quarter: 2011Q1

REPORT INFORMATION
  Report Type: 
  Country: None (occurrence: None)
  Receive Date: 20110330
  Receipt Date: 20110328
  Transmission Date: 20110831
  Serious: Yes (Other)
  Sender: FDA-Public Use
  Company Number: US-PFIZER INC-2011069121

PATIENT
  Age: 65 Year
  Sex: Female
  Weight: 72.562 kg

DRUGS (4)
  1. PLAVIX [Concomitant]
     Indication: STENT PLACEMENT
  2. PLAVIX [Concomitant]
     Indication: PERIPHERAL VASCULAR DISORDER
     Dosage: 50 MG, 1X/DAY
     Route: 048
  3. TOPROL-XL [Concomitant]
     Indication: HEART RATE INCREASED
     Dosage: 75 MG, 1X/DAY
     Route: 048
  4. LIPITOR [Suspect]
     Indication: BLOOD CHOLESTEROL INCREASED
     Dosage: 40 MG, 1X/DAY
     Route: 048
     Dates: end: 20101001

REACTIONS (3)
  - MUSCULOSKELETAL STIFFNESS [None]
  - MYOSITIS [None]
  - PAIN IN EXTREMITY [None]
